FAERS Safety Report 16532546 (Version 3)
Quarter: 2020Q2

REPORT INFORMATION
  Report Type: Report from Study
  Country: GB (occurrence: GB)
  Receive Date: 20190704
  Receipt Date: 20200407
  Transmission Date: 20200713
  Serious: Yes (Other)
  Sender: FDA-Public Use
  Company Number: GB-PFIZER INC-2019277074

PATIENT
  Age: 76 Year
  Sex: Female

DRUGS (26)
  1. DOCUSATE SODIUM. [Concomitant]
     Active Substance: DOCUSATE SODIUM
     Indication: CONSTIPATION
     Dosage: 400 MG, 1X/DAY
     Route: 048
     Dates: start: 20181102
  2. PACLITAXEL. [Suspect]
     Active Substance: PACLITAXEL
     Dosage: 120 MG, UNK
     Route: 042
     Dates: start: 20181108, end: 20190228
  3. TRASTUZUMAB. [Suspect]
     Active Substance: TRASTUZUMAB
     Dosage: 600 MG, EVERY 3 WEEKS
     Route: 058
     Dates: start: 20161013, end: 20180130
  4. LEVOTHYROXINE. [Concomitant]
     Active Substance: LEVOTHYROXINE
     Dosage: 175 MG, 1X/DAY
     Route: 048
     Dates: start: 20030924
  5. ZOLEDRONIC ACID [Concomitant]
     Active Substance: ZOLEDRONIC ACID
     Indication: BONE PAIN
     Dosage: 3.5 MG, MONTHLY
     Route: 042
     Dates: start: 20160920
  6. DENOSUMAB [Concomitant]
     Active Substance: DENOSUMAB
     Indication: PROPHYLAXIS
     Dosage: 120 MG, UNK
     Route: 058
     Dates: start: 20191001
  7. NERATINIB [Suspect]
     Active Substance: NERATINIB
     Dosage: 240 MG, 1X/DAY
     Route: 048
     Dates: start: 20180226, end: 20180227
  8. MACROGOL [Concomitant]
     Active Substance: POLYETHYLENE GLYCOLS
     Dosage: 2 UNK, 1X/DAY(1 SACHET)
     Route: 048
     Dates: start: 20160913
  9. PACLITAXEL. [Suspect]
     Active Substance: PACLITAXEL
     Dosage: 162 MG, UNK
     Route: 042
     Dates: start: 20180921, end: 20181025
  10. TRASTUZUMAB. [Suspect]
     Active Substance: TRASTUZUMAB
     Dosage: 600 MG, EVERY 3 WEEKS
     Route: 058
     Dates: start: 20180718
  11. CAPECITABINE. [Suspect]
     Active Substance: CAPECITABINE
     Dosage: 500 MG, UNK
     Route: 048
     Dates: start: 20180227, end: 20180731
  12. ZOLEDRONIC ACID [Concomitant]
     Active Substance: ZOLEDRONIC ACID
     Indication: METASTASES TO BONE
  13. PARACETAMOL [Concomitant]
     Active Substance: ACETAMINOPHEN
     Dosage: 4 G, 1X/DAY
     Route: 048
     Dates: start: 20160913
  14. METOCLOPRAMIDE. [Concomitant]
     Active Substance: METOCLOPRAMIDE
     Dosage: UNK
     Route: 048
     Dates: start: 20191104, end: 20191106
  15. DOMPERIDONE [Concomitant]
     Active Substance: DOMPERIDONE
     Indication: NAUSEA
     Dosage: 30 MG, 1X/DAY
     Route: 048
     Dates: start: 20181108
  16. NAPROXEN. [Concomitant]
     Active Substance: NAPROXEN
     Dosage: 500 MG, 1X/DAY
     Route: 048
     Dates: start: 20160902
  17. GABAPENTIN. [Concomitant]
     Active Substance: GABAPENTIN
     Dosage: 900 MG, 1X/DAY
     Route: 048
     Dates: start: 20160913
  18. FLUCLOXACILLIN [Concomitant]
     Active Substance: FLUCLOXACILLIN
     Dosage: UNK
     Route: 048
     Dates: start: 20191104, end: 20191106
  19. MORPHINE SULPHATE [Concomitant]
     Active Substance: MORPHINE SULFATE
     Dosage: 30 MG, 1X/DAY
     Route: 048
     Dates: start: 20181102
  20. LANSOPRAZOLE. [Concomitant]
     Active Substance: LANSOPRAZOLE
     Indication: PROPHYLAXIS
     Dosage: 30 MG, 1X/DAY
     Route: 048
     Dates: start: 20181106
  21. OMEPRAZOLE. [Concomitant]
     Active Substance: OMEPRAZOLE
     Indication: PROPHYLAXIS
     Dosage: 40 MG, 1X/DAY
     Route: 048
     Dates: start: 20160902
  22. EXEMESTANE. [Suspect]
     Active Substance: EXEMESTANE
     Dosage: 25 MG, 1X/DAY
     Route: 048
     Dates: start: 20161122
  23. MORPHINE SULPHATE [Concomitant]
     Active Substance: MORPHINE SULFATE
     Indication: BACK PAIN
     Dosage: 5 MG, AS NEEDED
     Route: 048
     Dates: start: 20160913
  24. CALCICHEW D3 FORTE [Concomitant]
     Active Substance: CALCIUM\CHOLECALCIFEROL
     Dosage: 2 DF, 1X/DAY
     Route: 048
     Dates: start: 20160917
  25. LIDOCAINE. [Concomitant]
     Active Substance: LIDOCAINE
     Dosage: 700 MG, UNK
     Route: 061
     Dates: start: 20181108
  26. METOCLOPRAMIDE. [Concomitant]
     Active Substance: METOCLOPRAMIDE
     Dosage: 10 MG, 3X/DAY
     Dates: start: 20190124

REACTIONS (1)
  - Tooth abscess [Recovered/Resolved]

NARRATIVE: CASE EVENT DATE: 20190528
